FAERS Safety Report 9343078 (Version 2)
Quarter: 2014Q2

REPORT INFORMATION
  Report Type: Spontaneous
  Country: US (occurrence: US)
  Receive Date: 20130611
  Receipt Date: 20140408
  Transmission Date: 20141212
  Serious: Yes (Hospitalization, Other)
  Sender: FDA-Public Use
  Company Number: US-B.I. PHARMACEUTICALS,INC./RIDGEFIELD-2013-BI-16276BP

PATIENT
  Age: 87 Year
  Sex: Female
  Weight: 66 kg

DRUGS (19)
  1. PRADAXA [Suspect]
     Indication: CEREBROVASCULAR ACCIDENT PROPHYLAXIS
     Dosage: 150 MG
     Route: 065
     Dates: start: 20110222
  2. PRADAXA [Suspect]
     Indication: THROMBOSIS PROPHYLAXIS
  3. PRADAXA [Suspect]
     Indication: ATRIAL FIBRILLATION
  4. ASPIRIN [Concomitant]
     Dosage: 81 MG
     Route: 065
  5. REQUIP [Concomitant]
     Dosage: 6 MG
     Route: 065
  6. SIMVASTATIN [Concomitant]
     Route: 065
  7. PAXIL [Concomitant]
     Dosage: 10 MG
     Route: 065
  8. LASIX [Concomitant]
     Dosage: 20 MG
     Route: 065
  9. POTASSIUM CL [Concomitant]
     Dosage: 10 MEQ
     Route: 065
  10. ALDACTONE [Concomitant]
     Dosage: 25 MG
     Route: 065
  11. ATENOLOL [Concomitant]
     Route: 065
  12. NEURONTIN [Concomitant]
     Dosage: 100 MG
     Route: 065
  13. ATORVASTATIN [Concomitant]
     Route: 065
  14. LEVOTHYROXINE [Concomitant]
     Route: 065
  15. PRAMIPEXOLE [Concomitant]
     Route: 065
  16. LEVOFLOXACIN [Concomitant]
     Dosage: 25 MCG
     Route: 065
  17. HYDROCODONE [Concomitant]
     Indication: PAIN
     Route: 065
  18. AMBIEN [Concomitant]
     Dosage: 5 MG
     Route: 065
  19. PREDNISOLONE [Concomitant]
     Route: 065

REACTIONS (3)
  - Gastrointestinal haemorrhage [Unknown]
  - Cholecystitis [Unknown]
  - Haemorrhagic anaemia [Unknown]
